FAERS Safety Report 9795755 (Version 1)
Quarter: 2014Q1

REPORT INFORMATION
  Report Type: Spontaneous
  Country: US (occurrence: US)
  Receive Date: 20140103
  Receipt Date: 20140103
  Transmission Date: 20141002
  Serious: Yes (Other)
  Sender: FDA-Public Use
  Company Number: US-BAYER-2013-158639

PATIENT
  Sex: Female

DRUGS (2)
  1. ANGELIQ [Suspect]
     Indication: MENOPAUSAL SYMPTOMS
     Dosage: 0.5 MG, UNK
     Route: 048
     Dates: start: 2005, end: 2012
  2. ANGELIQ [Suspect]
     Indication: HOT FLUSH

REACTIONS (5)
  - Postmenopausal haemorrhage [Recovered/Resolved]
  - Postmenopausal haemorrhage [None]
  - Drug ineffective [Recovered/Resolved]
  - Night sweats [Recovered/Resolved]
  - Memory impairment [Not Recovered/Not Resolved]
